FAERS Safety Report 6104502-1 (Version None)
Quarter: 2009Q1

REPORT INFORMATION
  Report Type: 
  Country: None (occurrence: None)
  Receive Date: 20090305
  Receipt Date: 20090304
  Transmission Date: 20090719
  Serious: No
  Sender: FDA-Public Use
  Company Number: US-B.I. PHARMACEUTICALS,INC./RIDGEFIELD-2009-BP-01209BP

PATIENT
  Age: 87 Year
  Sex: Male
  Weight: 77 kg

DRUGS (4)
  1. AGGRENOX [Suspect]
     Indication: TRANSIENT ISCHAEMIC ATTACK
     Route: 048
     Dates: start: 20090126
  2. OMEPRAZOLE [Concomitant]
     Dates: start: 20060101
  3. VITAMIN B-12 [Concomitant]
     Route: 030
     Dates: start: 20060313
  4. ASPIRIN [Concomitant]
     Dosage: 81MG

REACTIONS (1)
  - ABDOMINAL PAIN UPPER [None]
